FAERS Safety Report 18275347 (Version 1)
Quarter: 2020Q3

REPORT INFORMATION
  Report Type: Spontaneous
  Country: CH (occurrence: CH)
  Receive Date: 20200917
  Receipt Date: 20200917
  Transmission Date: 20201103
  Serious: Yes (Death, Other)
  Sender: FDA-Public Use
  Company Number: CH-ASTRAZENECA-2019SE66818

PATIENT
  Age: 23017 Day
  Sex: Male

DRUGS (38)
  1. ALLOPURINOL. [Suspect]
     Active Substance: ALLOPURINOL
     Indication: PRODUCT USED FOR UNKNOWN INDICATION
     Route: 048
     Dates: start: 20190507
  2. PREGABALIN. [Suspect]
     Active Substance: PREGABALIN
     Indication: RESTLESS LEGS SYNDROME
     Dosage: 50 MG IN TOTAL
     Route: 041
     Dates: start: 20190416, end: 20190416
  3. TORASEMIDE [Suspect]
     Active Substance: TORSEMIDE
     Indication: PRODUCT USED FOR UNKNOWN INDICATION
     Route: 048
     Dates: start: 20190426, end: 20190427
  4. MORPHINE [Concomitant]
     Active Substance: MORPHINE
     Dosage: 2MG IN ONCE
     Route: 041
     Dates: start: 20190414, end: 20190414
  5. COTRIMOXAZOLE [Concomitant]
     Active Substance: SULFAMETHOXAZOLE\TRIMETHOPRIM
     Dosage: 160MG
     Route: 048
     Dates: start: 20190412, end: 20190415
  6. RITUXIMAB. [Suspect]
     Active Substance: RITUXIMAB
     Indication: ACUTE LEUKAEMIA
     Dosage: 125 MILLIGRAMS PER SQUARE METRE, ONCE
     Route: 041
     Dates: start: 20190416, end: 20190416
  7. IDARUBICIN [Suspect]
     Active Substance: IDARUBICIN
     Indication: ACUTE LEUKAEMIA
     Dosage: 10 MILLIGRAM, ONCE
     Route: 041
     Dates: start: 20190423, end: 20190424
  8. VINCRISTINE [Suspect]
     Active Substance: VINCRISTINE
     Indication: ACUTE LEUKAEMIA
     Dosage: 1 MG IN TOTAL
     Route: 041
     Dates: start: 20190416, end: 20190416
  9. NEXIUM [Suspect]
     Active Substance: ESOMEPRAZOLE MAGNESIUM
     Indication: PRODUCT USED FOR UNKNOWN INDICATION
     Route: 041
     Dates: start: 20190411, end: 20190430
  10. ALLOPURINOL. [Suspect]
     Active Substance: ALLOPURINOL
     Indication: PRODUCT USED FOR UNKNOWN INDICATION
     Route: 048
     Dates: start: 20190409, end: 20190426
  11. PREGABALIN. [Suspect]
     Active Substance: PREGABALIN
     Indication: RESTLESS LEGS SYNDROME
     Route: 041
     Dates: start: 20190502
  12. HEPARIN SODIUM. [Suspect]
     Active Substance: HEPARIN SODIUM
     Indication: PRODUCT USED FOR UNKNOWN INDICATION
     Dosage: 7500 INTERNATIONAL UNIT, 1/DAY
     Route: 058
     Dates: start: 20190421
  13. PARACETAMOL [Suspect]
     Active Substance: ACETAMINOPHEN
     Indication: PRODUCT USED FOR UNKNOWN INDICATION
     Dosage: 1 GRAM, FOUR TIMES A DAY
     Route: 041
     Dates: start: 20190430
  14. LORAZEPAM. [Suspect]
     Active Substance: LORAZEPAM
     Indication: PRODUCT USED FOR UNKNOWN INDICATION
     Route: 048
     Dates: start: 20190414
  15. VALACICLOVIR [Suspect]
     Active Substance: VALACYCLOVIR HYDROCHLORIDE
     Indication: PRODUCT USED FOR UNKNOWN INDICATION
     Route: 048
     Dates: start: 20190409
  16. DEXAMETHASONE. [Concomitant]
     Active Substance: DEXAMETHASONE
     Route: 048
     Dates: start: 20190411, end: 20190415
  17. DEXAMETHASONE. [Concomitant]
     Active Substance: DEXAMETHASONE
     Route: 041
     Dates: start: 20190507
  18. CEFEPIME [Concomitant]
     Active Substance: CEFEPIME HYDROCHLORIDE
     Indication: PYREXIA
     Route: 041
     Dates: start: 20190411
  19. VITAMIN B12 [Concomitant]
     Active Substance: CYANOCOBALAMIN
     Dosage: 1000 UG IN TOTAL
     Route: 030
     Dates: start: 20190415, end: 20190415
  20. RITUXIMAB. [Suspect]
     Active Substance: RITUXIMAB
     Indication: ACUTE LEUKAEMIA
     Dosage: 300 MILLIGRAMS ONCE/SINGLE ADMINISTRATION
     Route: 041
     Dates: start: 20190417, end: 20190418
  21. IDARUBICIN [Suspect]
     Active Substance: IDARUBICIN
     Indication: ACUTE LEUKAEMIA
     Dosage: 10 MILLIGRAM, ONCE
     Route: 041
     Dates: start: 20190416, end: 20190416
  22. PETHIDINE [Concomitant]
     Active Substance: MEPERIDINE
     Dosage: 25MG IN TOTAL
     Route: 041
     Dates: start: 20190416, end: 20190416
  23. HEPARIN SODIUM. [Suspect]
     Active Substance: HEPARIN SODIUM
     Indication: PRODUCT USED FOR UNKNOWN INDICATION
     Dosage: 100000 IU
     Route: 058
     Dates: start: 20190410, end: 20190416
  24. PARACETAMOL [Suspect]
     Active Substance: ACETAMINOPHEN
     Indication: PRODUCT USED FOR UNKNOWN INDICATION
     Dosage: 1 GRAM, AS NEEDED
     Route: 041
     Dates: start: 20190410, end: 20190416
  25. TORASEMIDE [Suspect]
     Active Substance: TORSEMIDE
     Indication: PRODUCT USED FOR UNKNOWN INDICATION
     Route: 048
     Dates: start: 20190413, end: 20190420
  26. CLEMASTINE [Concomitant]
     Active Substance: CLEMASTINE
     Route: 041
     Dates: start: 20190416, end: 20190416
  27. VINCRISTINE [Suspect]
     Active Substance: VINCRISTINE
     Indication: ACUTE LEUKAEMIA
     Dosage: 1 MG IN TOTAL
     Route: 041
     Dates: start: 20190423, end: 20190423
  28. FLUCONAZOLE. [Concomitant]
     Active Substance: FLUCONAZOLE
     Route: 048
     Dates: start: 20190412, end: 20190416
  29. VANCOMYCIN [Suspect]
     Active Substance: VANCOMYCIN
     Indication: PRODUCT USED FOR UNKNOWN INDICATION
     Route: 041
     Dates: start: 20190416, end: 20190417
  30. PREGABALIN. [Suspect]
     Active Substance: PREGABALIN
     Indication: RESTLESS LEGS SYNDROME
     Route: 041
     Dates: start: 20190420, end: 20190502
  31. LORAZEPAM. [Suspect]
     Active Substance: LORAZEPAM
     Indication: PRODUCT USED FOR UNKNOWN INDICATION
     Dosage: 0.5MG
     Route: 048
     Dates: start: 20190410
  32. ONDANSETRON [Suspect]
     Active Substance: ONDANSETRON
     Indication: PRODUCT USED FOR UNKNOWN INDICATION
     Route: 048
     Dates: start: 20190416, end: 20190418
  33. ONDANSETRON [Suspect]
     Active Substance: ONDANSETRON
     Indication: PRODUCT USED FOR UNKNOWN INDICATION
     Route: 048
     Dates: start: 20190418, end: 20190504
  34. TRAMADOL. [Suspect]
     Active Substance: TRAMADOL
     Indication: PRODUCT USED FOR UNKNOWN INDICATION
     Dosage: 50MG FOUR TIMES A DAY
     Route: 048
     Dates: start: 20190412, end: 20190417
  35. MORPHINE [Concomitant]
     Active Substance: MORPHINE
     Dosage: 6MG IN ONCE
     Route: 041
     Dates: start: 20190414, end: 20190414
  36. VANCOMYCIN [Suspect]
     Active Substance: VANCOMYCIN
     Indication: PRODUCT USED FOR UNKNOWN INDICATION
     Route: 041
     Dates: start: 20190502, end: 20190508
  37. TRAMADOL. [Suspect]
     Active Substance: TRAMADOL
     Indication: PRODUCT USED FOR UNKNOWN INDICATION
     Dosage: 50 MILLIGRAM, AS NEEDED
     Route: 048
     Dates: start: 20190417, end: 20190501
  38. DEXAMETHASONE. [Concomitant]
     Active Substance: DEXAMETHASONE
     Route: 041
     Dates: start: 20190416, end: 20190417

REACTIONS (2)
  - B-cell lymphoma [Fatal]
  - Hepatocellular injury [Recovered/Resolved]

NARRATIVE: CASE EVENT DATE: 20190417
